FAERS Safety Report 23980794 (Version 1)
Quarter: 2024Q2

REPORT INFORMATION
  Report Type: Spontaneous
  Country: IT (occurrence: IT)
  Receive Date: 20240617
  Receipt Date: 20240617
  Transmission Date: 20240715
  Serious: Yes (Other)
  Sender: FDA-Public Use
  Company Number: None

PATIENT
  Age: 22 Year
  Sex: Female

DRUGS (1)
  1. CYCLOSPORINE [Suspect]
     Active Substance: CYCLOSPORINE
     Indication: Product used for unknown indication
     Dosage: 150 MG DAILY
     Route: 065
     Dates: start: 20240529, end: 20240529

REACTIONS (5)
  - Laryngeal oedema [Recovering/Resolving]
  - Lip oedema [Recovered/Resolved]
  - Pruritus [Recovering/Resolving]
  - Paraesthesia [Recovered/Resolved]
  - Paraesthesia [Recovering/Resolving]

NARRATIVE: CASE EVENT DATE: 20240529
